FAERS Safety Report 4777283-1 (Version None)
Quarter: 2005Q3

REPORT INFORMATION
  Report Type: 
  Country: None (occurrence: None)
  Receive Date: 20050921
  Receipt Date: 20050907
  Transmission Date: 20060218
  Serious: Yes (Hospitalization)
  Sender: FDA-Public Use
  Company Number: USA041081579

PATIENT
  Age: 70 Year
  Sex: Female
  Weight: 44 kg

DRUGS (8)
  1. EVISTA [Suspect]
     Indication: OSTEOPOROSIS
     Dates: start: 19970701
  2. FORTEO [Suspect]
     Indication: OSTEOPOROSIS
     Dosage: 20 UG/1 DAY
     Dates: start: 20040915
  3. TOBRAMYCIN [Concomitant]
  4. VERAPAMIL [Concomitant]
  5. ALPRAZOLAM [Concomitant]
  6. MULTIVITAMIN [Concomitant]
  7. CALCIUM WITH VITAMIN D [Concomitant]
  8. FOSAMAX [Concomitant]

REACTIONS (30)
  - ANXIETY [None]
  - ARTHRALGIA [None]
  - BODY HEIGHT DECREASED [None]
  - BODY TEMPERATURE INCREASED [None]
  - BONE DENSITY DECREASED [None]
  - BRONCHIECTASIS [None]
  - CONDITION AGGRAVATED [None]
  - DYSPNOEA [None]
  - ELECTROCARDIOGRAM ABNORMAL [None]
  - FALL [None]
  - FATIGUE [None]
  - HEADACHE [None]
  - HERPES SIMPLEX [None]
  - INJECTION SITE ERYTHEMA [None]
  - INJECTION SITE IRRITATION [None]
  - JOINT SWELLING [None]
  - LUNG INFECTION [None]
  - LUNG INFECTION PSEUDOMONAL [None]
  - MEDICAL DEVICE COMPLICATION [None]
  - MUSCLE SPASMS [None]
  - PAIN [None]
  - PHARMACEUTICAL PRODUCT COMPLAINT [None]
  - PNEUMONIA [None]
  - SECRETION DISCHARGE [None]
  - SINUS DISORDER [None]
  - SINUSITIS [None]
  - SPINAL DISORDER [None]
  - STOMACH DISCOMFORT [None]
  - STRESS [None]
  - VIRAL INFECTION [None]
